FAERS Safety Report 22223958 (Version 2)
Quarter: 2023Q4

REPORT INFORMATION
  Report Type: Other
  Country: US (occurrence: US)
  Receive Date: 20230418
  Receipt Date: 20231120
  Transmission Date: 20240110
  Serious: No
  Sender: FDA-Public Use
  Company Number: US-UROVANT SCIENCES GMBH-202302-URV-000128

PATIENT
  Age: 84 Year
  Sex: Female

DRUGS (1)
  1. GEMTESA [Suspect]
     Active Substance: VIBEGRON
     Indication: Incontinence
     Dosage: 75 MG, QD
     Route: 048
     Dates: start: 20230131

REACTIONS (5)
  - Drug ineffective [Unknown]
  - Rhinorrhoea [Recovered/Resolved]
  - Dizziness [Unknown]
  - Malaise [Unknown]
  - Paraesthesia [Unknown]

NARRATIVE: CASE EVENT DATE: 20221231
